FAERS Safety Report 9143249 (Version 1)
Quarter: 2013Q1

REPORT INFORMATION
  Report Type: Report from Study
  Country: CA (occurrence: CA)
  Receive Date: 20130306
  Receipt Date: 20130306
  Transmission Date: 20140127
  Serious: Yes (Hospitalization, Other)
  Sender: FDA-Public Use
  Company Number: PHHY2013CA020582

PATIENT
  Sex: Male

DRUGS (2)
  1. CLOZARIL [Suspect]
     Indication: SCHIZOPHRENIA
     Dosage: UNK
     Dates: start: 20130103, end: 20130222
  2. CLOZARIL [Suspect]
     Dosage: UNK

REACTIONS (4)
  - Clostridium difficile infection [Unknown]
  - Vomiting [Unknown]
  - Intestinal obstruction [Unknown]
  - Red blood cell abnormality [Unknown]
